FAERS Safety Report 8688823 (Version 3)
Quarter: 2013Q1

REPORT INFORMATION
  Report Type: Spontaneous
  Country: US (occurrence: US)
  Receive Date: 20120727
  Receipt Date: 20130222
  Transmission Date: 20140127
  Serious: No
  Sender: FDA-Public Use
  Company Number: US-ASTRAZENECA-2011SE68585

PATIENT
  Age: 42 Year
  Sex: Male
  Weight: 77.1 kg

DRUGS (7)
  1. SEROQUEL [Suspect]
     Indication: BIPOLAR DISORDER
     Route: 048
  2. SEROQUEL [Suspect]
     Indication: BIPOLAR DISORDER
     Route: 048
  3. SEROQUEL [Suspect]
     Indication: BIPOLAR DISORDER
     Route: 048
  4. SEROQUEL [Suspect]
     Indication: BIPOLAR DISORDER
     Dosage: 25 MG IN THE MORNING AND 300MG AT NIGHT
     Route: 048
  5. SEROQUEL [Suspect]
     Indication: BIPOLAR DISORDER
     Dosage: 50 MG IN THE MORNING AND 300MG AT NIGHT
     Route: 048
     Dates: start: 201301
  6. XANAX [Concomitant]
     Indication: ANXIETY
  7. VENLAFAXINE [Concomitant]
     Indication: BIPOLAR DISORDER

REACTIONS (14)
  - Bipolar disorder [Unknown]
  - Influenza like illness [Unknown]
  - Malaise [Unknown]
  - Diarrhoea [Unknown]
  - Hyperhidrosis [Unknown]
  - Chills [Unknown]
  - Malaise [Unknown]
  - Insomnia [Unknown]
  - Feeling cold [Unknown]
  - Anger [Unknown]
  - Mental impairment [Unknown]
  - Drug withdrawal syndrome [Unknown]
  - Vomiting [Unknown]
  - Drug dose omission [Unknown]
